FAERS Safety Report 7347474-4 (Version None)
Quarter: 2011Q1

REPORT INFORMATION
  Report Type: 
  Country: None (occurrence: None)
  Receive Date: 20110311
  Receipt Date: 20100908
  Transmission Date: 20110831
  Serious: Yes (Other)
  Sender: FDA-Public Use
  Company Number: US-BAYER-201011837NA

PATIENT
  Sex: Female
  Weight: 117.73 kg

DRUGS (12)
  1. BENTYL [Concomitant]
  2. YASMIN [Suspect]
     Dosage: 1 DF (DAILY DOSE), QD, ORAL
     Route: 048
     Dates: start: 20070701, end: 20080301
  3. YAZ [Suspect]
     Route: 048
     Dates: start: 20070712, end: 20080201
  4. NSAID'S [Concomitant]
  5. PROMETHAZINE [Concomitant]
     Indication: NAUSEA
     Dosage: 25 MG, UNK
  6. CONTRACEPTIVES NOS [Concomitant]
  7. METOCLOPRAMIDE HCL [Concomitant]
     Indication: MUSCLE SPASMS
  8. UNKNOWN DRUG [Concomitant]
     Indication: MIGRAINE
  9. DICYCLOMINE [Concomitant]
     Indication: PAIN
     Dosage: 50 MG, UNK
  10. PROMETHAZINE [Concomitant]
     Indication: VOMITING
  11. METOCLOPRAMIDE HCL [Concomitant]
     Indication: ABDOMINAL PAIN
     Dosage: 10 MG, QID
  12. OXYCODONE [Concomitant]
     Indication: PAIN
     Dosage: UNK UNK, Q4HR

REACTIONS (5)
  - CHOLELITHIASIS [None]
  - CHOLECYSTITIS CHRONIC [None]
  - ABDOMINAL PAIN UPPER [None]
  - VOMITING [None]
  - NAUSEA [None]
